FAERS Safety Report 15306980 (Version 8)
Quarter: 2023Q4

REPORT INFORMATION
  Report Type: Spontaneous
  Country: DK (occurrence: DK)
  Receive Date: 20180822
  Receipt Date: 20231207
  Transmission Date: 20240109
  Serious: Yes (Hospitalization, Other)
  Sender: FDA-Public Use
  Company Number: PHHY2018DK035204

PATIENT
  Age: 32 Year
  Sex: Female
  Weight: 52 kg

DRUGS (24)
  1. OCTREOTIDE [Suspect]
     Active Substance: OCTREOTIDE
     Indication: Diarrhoea
     Dosage: UNK
     Route: 065
  2. OCTREOTIDE [Suspect]
     Active Substance: OCTREOTIDE
  3. OCTREOTIDE [Suspect]
     Active Substance: OCTREOTIDE
  4. ADALIMUMAB [Suspect]
     Active Substance: ADALIMUMAB\ISOPROPYL ALCOHOL
     Indication: Crohn^s disease
     Dosage: UNK
     Route: 065
  5. LEVETIRACETAM [Suspect]
     Active Substance: LEVETIRACETAM
     Indication: Depression
     Dosage: 1500 MG, QD
     Route: 065
  6. INFLIXIMAB [Suspect]
     Active Substance: INFLIXIMAB
     Indication: Crohn^s disease
     Dosage: UNK
     Route: 065
  7. PANTOPRAZOLE [Suspect]
     Active Substance: PANTOPRAZOLE
     Indication: Bile acid malabsorption
     Dosage: UNK
     Route: 065
  8. MERCAPTOPURINE [Suspect]
     Active Substance: MERCAPTOPURINE
     Indication: Crohn^s disease
     Dosage: UNK
     Route: 065
  9. ENTYVIO [Suspect]
     Active Substance: VEDOLIZUMAB
     Indication: Crohn^s disease
     Dosage: UNK
     Route: 065
  10. TYSABRI [Suspect]
     Active Substance: NATALIZUMAB
     Indication: Crohn^s disease
     Dosage: UNK
     Route: 065
  11. LIRAGLUTIDE [Suspect]
     Active Substance: LIRAGLUTIDE
     Indication: Diarrhoea
     Dosage: UNK
     Route: 065
  12. CODEINE PHOSPHATE [Suspect]
     Active Substance: CODEINE PHOSPHATE
     Indication: Diarrhoea
     Dosage: UNK
     Route: 065
  13. CODEINE PHOSPHATE [Suspect]
     Active Substance: CODEINE PHOSPHATE
     Indication: Bile acid malabsorption
  14. CODEINE PHOSPHATE [Suspect]
     Active Substance: CODEINE PHOSPHATE
     Indication: Bile acid malabsorption
  15. ESCITALOPRAM [Suspect]
     Active Substance: ESCITALOPRAM OXALATE
     Indication: Depression
     Dosage: 40 MG, QD
     Route: 065
  16. SPIRONOLACTONE [Suspect]
     Active Substance: SPIRONOLACTONE
     Indication: Diarrhoea
     Dosage: UNK
     Route: 065
  17. LAMOTRIGINE [Concomitant]
     Active Substance: LAMOTRIGINE
     Indication: Epilepsy
     Dosage: 400 MG, QD
     Route: 065
  18. LAMOTRIGINE [Concomitant]
     Active Substance: LAMOTRIGINE
     Indication: Myoclonic epilepsy
  19. COLESEVELAM HYDROCHLORIDE [Concomitant]
     Active Substance: COLESEVELAM HYDROCHLORIDE
     Indication: Bile acid malabsorption
     Dosage: 1875 MG, QD (625 MG, TID)
     Route: 065
  20. COLESEVELAM HYDROCHLORIDE [Concomitant]
     Active Substance: COLESEVELAM HYDROCHLORIDE
     Indication: Crohn^s disease
  21. VENLAFAXINE HYDROCHLORIDE [Concomitant]
     Active Substance: VENLAFAXINE HYDROCHLORIDE
     Indication: Depression
     Dosage: 225 MG, QD
     Route: 065
  22. QUESTRAN [Concomitant]
     Active Substance: CHOLESTYRAMINE
     Indication: Bile acid malabsorption
     Dosage: UNK
     Route: 065
  23. IMODIUM [Concomitant]
     Active Substance: LOPERAMIDE HYDROCHLORIDE
     Indication: Diarrhoea
     Dosage: 2-8 MG QD (EVERY 1 DAY)
     Route: 065
  24. IMODIUM [Concomitant]
     Active Substance: LOPERAMIDE HYDROCHLORIDE
     Indication: Bile acid malabsorption

REACTIONS (7)
  - Abdominal pain [Unknown]
  - Clostridium difficile colitis [Unknown]
  - Functional gastrointestinal disorder [Recovering/Resolving]
  - Bile acid malabsorption [Not Recovered/Not Resolved]
  - Product use in unapproved indication [Unknown]
  - Drug ineffective [Unknown]
  - Clostridium difficile infection [Unknown]
